FAERS Safety Report 11547967 (Version 1)
Quarter: 2015Q3

REPORT INFORMATION
  Report Type: Spontaneous
  Country: US (occurrence: US)
  Receive Date: 20150903
  Receipt Date: 20150903
  Transmission Date: 20151125
  Serious: No
  Sender: FDA-Public Use
  Company Number: US-ELI_LILLY_AND_COMPANY-US201207004510

PATIENT
  Sex: Male

DRUGS (4)
  1. HUMALOG [Suspect]
     Active Substance: INSULIN LISPRO
  2. LANTUS [Concomitant]
     Active Substance: INSULIN GLARGINE
     Dosage: 15 U, EACH MORNING
  3. LANTUS [Concomitant]
     Active Substance: INSULIN GLARGINE
     Dosage: 40 U, UNK
  4. LANTUS [Concomitant]
     Active Substance: INSULIN GLARGINE
     Dosage: 36 U, UNK

REACTIONS (2)
  - Blood glucose increased [Recovered/Resolved]
  - Blood glucose decreased [Recovered/Resolved]
